FAERS Safety Report 9712306 (Version 1)
Quarter: 2013Q4

REPORT INFORMATION
  Report Type: Spontaneous
  Country: US (occurrence: US)
  Receive Date: 20131126
  Receipt Date: 20131126
  Transmission Date: 20140711
  Serious: No
  Sender: FDA-Public Use
  Company Number: US-BRISTOL-MYERS SQUIBB COMPANY-18862540

PATIENT
  Age: 55 Year
  Sex: Male
  Weight: 88.43 kg

DRUGS (5)
  1. BYDUREON [Suspect]
     Dosage: NO OF INJ:5
  2. METFORMIN HCL [Suspect]
  3. LIPITOR [Concomitant]
  4. LISINOPRIL [Concomitant]
  5. BUSPIRONE [Concomitant]

REACTIONS (6)
  - Injection site haemorrhage [Recovered/Resolved]
  - Injection site nodule [Not Recovered/Not Resolved]
  - Blood glucose increased [Not Recovered/Not Resolved]
  - Weight decreased [Not Recovered/Not Resolved]
  - Decreased appetite [Recovering/Resolving]
  - Asthenia [Recovering/Resolving]
